FAERS Safety Report 18061471 (Version 2)
Quarter: 2020Q3

REPORT INFORMATION
  Report Type: Spontaneous
  Country: IT (occurrence: IT)
  Receive Date: 20200723
  Receipt Date: 20200729
  Transmission Date: 20201103
  Serious: Yes (Other)
  Sender: FDA-Public Use
  Company Number: IT-BAXTER-2020BAX014396

PATIENT
  Age: 29 Year
  Sex: Female

DRUGS (23)
  1. ENDOXAN BAXTER [Suspect]
     Active Substance: CYCLOPHOSPHAMIDE
     Indication: IMMUNE THROMBOCYTOPENIA
     Route: 065
  2. DEXAMETHASONE. [Suspect]
     Active Substance: DEXAMETHASONE
     Dosage: 40 MG/KG, ADMINISTERED DURING PREGNANCY
     Route: 065
  3. PREDNISONE. [Suspect]
     Active Substance: PREDNISONE
     Dosage: ADMINISTERED WITH CVP CHEMOTHERAPY
     Route: 065
  4. LEDIPASVIR [Concomitant]
     Active Substance: LEDIPASVIR
     Indication: HEPATITIS C
     Route: 065
  5. PREDNISONE. [Suspect]
     Active Substance: PREDNISONE
     Route: 065
     Dates: start: 201703
  6. SOFOSBUVIR [Concomitant]
     Active Substance: SOFOSBUVIR
     Indication: HEPATITIS C
     Route: 065
  7. CYCLOSPORINE A [Concomitant]
     Active Substance: CYCLOSPORINE
     Indication: PRODUCT USED FOR UNKNOWN INDICATION
     Dosage: 50 MG X 2 UP TO 100 MG X 2 DAILY
     Route: 065
  8. ROMIPLOSTIM [Suspect]
     Active Substance: ROMIPLOSTIM
     Indication: IMMUNE THROMBOCYTOPENIA
     Dosage: ADMINISTERED DURING PREGNANCY
     Route: 065
  9. DEXAMETHASONE. [Suspect]
     Active Substance: DEXAMETHASONE
     Dosage: FOUR COURSES
     Route: 065
     Dates: start: 2017
  10. PREDNISONE. [Suspect]
     Active Substance: PREDNISONE
     Route: 065
     Dates: start: 201611
  11. IMMUNOGLOBULIN (IMMUNOGLOBULIN HUMAN NORMAL) [Suspect]
     Active Substance: HUMAN IMMUNOGLOBULIN G
     Dosage: ADMINISTERED DURING PREGNANCY AT AN UNSPECIFIED DOSE
     Route: 042
  12. ELTROMBOPAG [Suspect]
     Active Substance: ELTROMBOPAG
     Indication: IMMUNE THROMBOCYTOPENIA
     Route: 065
     Dates: start: 201703
  13. VINCRISTINE [Suspect]
     Active Substance: VINCRISTINE
     Indication: IMMUNE THROMBOCYTOPENIA
     Route: 065
  14. MYCOPHENOLATE MOFETIL. [Suspect]
     Active Substance: MYCOPHENOLATE MOFETIL
     Indication: IMMUNE THROMBOCYTOPENIA
     Dosage: 3 GRAM DAILY
     Route: 065
  15. ROMIPLOSTIM [Suspect]
     Active Substance: ROMIPLOSTIM
     Dosage: ADMINISTERED DURING PREGNANCY
     Route: 065
  16. ELTROMBOPAG [Suspect]
     Active Substance: ELTROMBOPAG
     Dosage: 50 MILLIGRAM DAILY;
     Route: 065
  17. ENDOXAN BAXTER [Suspect]
     Active Substance: CYCLOPHOSPHAMIDE
     Route: 065
     Dates: start: 2017
  18. ELTROMBOPAG [Suspect]
     Active Substance: ELTROMBOPAG
     Dosage: BETWEEN SEPTEMBER?DECEMBER 2017 AT UNKNOWN DOSE
     Route: 065
     Dates: start: 2017
  19. MYCOPHENOLATE MOFETIL. [Suspect]
     Active Substance: MYCOPHENOLATE MOFETIL
     Dosage: 1 GRAM DAILY
     Route: 065
  20. DEXAMETHASONE. [Suspect]
     Active Substance: DEXAMETHASONE
     Indication: IMMUNE THROMBOCYTOPENIA
     Dosage: ADMINISTERED DURING PREGNANCY
     Route: 065
     Dates: start: 2017
  21. PREDNISONE. [Suspect]
     Active Substance: PREDNISONE
     Indication: IMMUNE THROMBOCYTOPENIA
     Dosage: ADMINISTERED DURING PREGNANCY AT AN UNSPECIFIED DOSE
     Route: 065
  22. IMMUNOGLOBULIN (IMMUNOGLOBULIN HUMAN NORMAL) [Suspect]
     Active Substance: HUMAN IMMUNOGLOBULIN G
     Indication: IMMUNE THROMBOCYTOPENIA
     Route: 042
     Dates: start: 201611
  23. ELTROMBOPAG [Suspect]
     Active Substance: ELTROMBOPAG
     Route: 065
     Dates: start: 201611

REACTIONS (8)
  - Treatment failure [Unknown]
  - Petechiae [Unknown]
  - Maternal exposure during pregnancy [Unknown]
  - Epistaxis [Unknown]
  - Thrombocytosis [Unknown]
  - Gingival bleeding [Unknown]
  - Normal newborn [Unknown]
  - Off label use [Unknown]
